FAERS Safety Report 10154525 (Version 1)
Quarter: 2014Q2

REPORT INFORMATION
  Report Type: Spontaneous
  Country: US (occurrence: US)
  Receive Date: 20140506
  Receipt Date: 20140506
  Transmission Date: 20141212
  Serious: No
  Sender: FDA-Public Use
  Company Number: US-PFIZER INC-2014121268

PATIENT
  Age: 82 Year
  Sex: Female
  Weight: 57.6 kg

DRUGS (6)
  1. MORPHINE SULFATE [Suspect]
     Indication: PAIN
     Dosage: UNK
  2. LEVOTHYROXINE [Concomitant]
     Indication: THYROID DISORDER
     Dosage: 50 UG, DAILY
  3. ALLOPURINOL [Concomitant]
     Indication: GOUT
     Dosage: 100 MG, DAILY
  4. SPIRONOLACTONE W/HYDROCHLOROTHIAZIDE [Concomitant]
     Indication: CARDIAC DISORDER
     Dosage: 25/25MG, DAILY
  5. SPIRONOLACTONE W/HYDROCHLOROTHIAZIDE [Concomitant]
     Indication: DIURETIC THERAPY
  6. GLYBURIDE [Concomitant]
     Indication: DIABETES MELLITUS
     Dosage: 2.5 MG, DAILY

REACTIONS (1)
  - Drug ineffective [Unknown]
